FAERS Safety Report 5640636-3 (Version None)
Quarter: 2008Q1

REPORT INFORMATION
  Report Type: 
  Country: None (occurrence: None)
  Receive Date: 20080227
  Receipt Date: 20080214
  Transmission Date: 20080703
  Serious: Yes (Hospitalization, Other)
  Sender: FDA-Public Use
  Company Number: US-AMGEN-US261210

PATIENT
  Sex: Female

DRUGS (13)
  1. ENBREL [Suspect]
     Indication: RHEUMATOID ARTHRITIS
     Route: 058
     Dates: start: 20060120, end: 20070101
  2. ARAVA [Concomitant]
     Route: 048
     Dates: start: 20000301
  3. NAPROSYN [Concomitant]
     Route: 048
  4. COZAAR [Concomitant]
  5. HYDROCHLOROTHIAZIDE [Concomitant]
  6. FISH OIL [Concomitant]
  7. MTV [Concomitant]
  8. VICODIN ES [Concomitant]
  9. ALLEGRA [Concomitant]
  10. SUDAFED 12 HOUR [Concomitant]
  11. FLEXERIL [Concomitant]
  12. PREDNISONE TAB [Concomitant]
  13. ALBUTEROL [Concomitant]

REACTIONS (9)
  - ALPHA HAEMOLYTIC STREPTOCOCCAL INFECTION [None]
  - ARTHRALGIA [None]
  - BRONCHITIS [None]
  - EMPYEMA [None]
  - INFLUENZA [None]
  - LUNG ABSCESS [None]
  - MUSCULOSKELETAL STIFFNESS [None]
  - PLEURAL EFFUSION [None]
  - PLEURITIC PAIN [None]
